FAERS Safety Report 21226043 (Version 2)
Quarter: 2025Q1

REPORT INFORMATION
  Report Type: Spontaneous
  Country: US (occurrence: US)
  Receive Date: 20220818
  Receipt Date: 20250328
  Transmission Date: 20250409
  Serious: Yes (Death, Other)
  Sender: RANBAXY
  Company Number: US-SUN PHARMACEUTICAL INDUSTRIES LTD-2021R1-307591

PATIENT
  Sex: Female
  Weight: 70.4 kg

DRUGS (7)
  1. BACTRIM DS [Suspect]
     Active Substance: SULFAMETHOXAZOLE\TRIMETHOPRIM
     Indication: Cellulitis
     Dosage: 1 DOSAGE FORM, BID
     Route: 048
     Dates: start: 20200402, end: 20200402
  2. ESIDRIX/HYDRODIURIL [Concomitant]
     Indication: Product used for unknown indication
     Route: 048
     Dates: start: 20200402, end: 20200409
  3. K-TAB [Concomitant]
     Active Substance: POTASSIUM CHLORIDE
     Indication: Product used for unknown indication
     Dosage: 1 DOSAGE FORM, DAILY
     Route: 048
  4. LEVOTHROID/SYNTHROID [Concomitant]
     Indication: Product used for unknown indication
     Route: 048
  5. LIPITOR [Concomitant]
     Active Substance: ATORVASTATIN CALCIUM
     Indication: Product used for unknown indication
     Route: 048
  6. LOPRESSOR [Concomitant]
     Active Substance: METOPROLOL TARTRATE
     Indication: Product used for unknown indication
     Dosage: 0.5 TABLET/BID
     Route: 048
  7. NORVASC [Concomitant]
     Active Substance: AMLODIPINE BESYLATE
     Indication: Product used for unknown indication
     Dosage: 1 DOSAGE FORM, DAILY
     Route: 048

REACTIONS (4)
  - Toxic epidermal necrolysis [Fatal]
  - Cardio-respiratory arrest [Fatal]
  - Aspiration [Fatal]
  - Contraindicated product prescribed [Unknown]
